FAERS Safety Report 11058053 (Version 1)
Quarter: 2015Q2

REPORT INFORMATION
  Report Type: Spontaneous
  Country: US (occurrence: None)
  Receive Date: 20150422
  Receipt Date: 20150422
  Transmission Date: 20150821
  Serious: Yes (Other)
  Sender: FDA-Public Use
  Company Number: None

PATIENT
  Age: 53 Year
  Sex: Male

DRUGS (1)
  1. BCG LIVE [Suspect]
     Active Substance: BACILLUS CALMETTE-GUERIN SUBSTRAIN TICE LIVE ANTIGEN
     Indication: BLADDER CANCER

REACTIONS (14)
  - Bladder cancer recurrent [None]
  - Suicidal ideation [None]
  - Peripheral swelling [None]
  - Head titubation [None]
  - Pain in extremity [None]
  - Fall [None]
  - Pulmonary mass [None]
  - Procedural complication [None]
  - Gait disturbance [None]
  - Dysphemia [None]
  - Thrombosis [None]
  - Hypersomnia [None]
  - Atrial fibrillation [None]
  - Dyspnoea [None]
